FAERS Safety Report 8152020-1 (Version None)
Quarter: 2012Q1

REPORT INFORMATION
  Report Type: 
  Country: None (occurrence: None)
  Receive Date: 20120214
  Receipt Date: 20120202
  Transmission Date: 20120608
  Serious: Yes (Death)
  Sender: FDA-Public Use
  Company Number: 1000027434

PATIENT
  Age: 66 Year
  Sex: Male
  Weight: 48 kg

DRUGS (9)
  1. ROFLUMILAST (ROFLUMILAST) (TABLETS) [Suspect]
     Indication: CHRONIC OBSTRUCTIVE PULMONARY DISEASE
     Dosage: 500 MCG (500 MCG,1 IN 1 D),ORAL
     Route: 048
     Dates: start: 20110805, end: 20111027
  2. OXYGEN (OXYGEN)(OXYGEN) [Concomitant]
  3. CALCIVIT (CEVICALCIT) (CEVICALCIT) [Concomitant]
  4. ALBUTEROL [Concomitant]
  5. NEBILET (NEBIVOLOL HYDROCHLORIDE) (NEBIVOLOL HYDROCHLORIDE) [Concomitant]
  6. SYMBICORT(BUDESONIDE W/FORMOTEROL FUMARATE)(BUDESONIDE W/FORMOTEROL FU [Concomitant]
  7. AMLODIPINE [Concomitant]
  8. SPIRIVA(TIOTROPIUM BROMIDE)(TIOTROPIUM BROMIDE) [Concomitant]
  9. THEOPHYLLINE [Concomitant]

REACTIONS (4)
  - CHRONIC OBSTRUCTIVE PULMONARY DISEASE [None]
  - CACHEXIA [None]
  - CONDITION AGGRAVATED [None]
  - RESPIRATORY FAILURE [None]
